FAERS Safety Report 4880131-2 (Version None)
Quarter: 2006Q1

REPORT INFORMATION
  Report Type: 
  Country: None (occurrence: None)
  Receive Date: 20060113
  Receipt Date: 20051010
  Transmission Date: 20060701
  Serious: Yes (Other)
  Sender: FDA-Public Use
  Company Number: PHEH2005US11333

PATIENT
  Sex: Female

DRUGS (14)
  1. ZOMETA [Suspect]
     Indication: METASTASES TO BONE
     Dosage: 4 MG EVERY 3-4 WEEKS (DEP ON CHEMO SCHED)
     Dates: start: 20041031, end: 20050810
  2. XELODA [Concomitant]
  3. TAXOTERE [Concomitant]
  4. GEMZAR [Concomitant]
  5. OXYCONTIN [Concomitant]
     Indication: PAIN
     Dosage: 40 MG, BID
  6. PERCOCET [Concomitant]
     Indication: PAIN
     Dosage: 1-2  PRN
  7. NEURONTIN [Concomitant]
     Indication: PAIN
  8. PREDNISONE [Concomitant]
     Indication: ADRENAL INSUFFICIENCY
     Dosage: 5 MG, QD
     Dates: start: 20040701
  9. DECADRON [Concomitant]
     Indication: PROPHYLAXIS
     Dosage: 10 MG, UNK
     Dates: start: 20050414
  10. PRAVACHOL [Concomitant]
     Indication: HYPERCHOLESTEROLAEMIA
     Dosage: 20 MG, UNK
  11. LOPRESSOR [Concomitant]
     Dosage: 12.5 MG, UNK
  12. CELEBREX [Concomitant]
     Indication: PAIN
     Dosage: 200 MG, BID
  13. COUMADIN [Concomitant]
     Indication: DEEP VEIN THROMBOSIS
     Dosage: 3-5 MG
  14. ZOLOFT [Concomitant]
     Indication: DEPRESSION
     Dosage: 50-100 MG

REACTIONS (2)
  - BONE DISORDER [None]
  - OSTEONECROSIS [None]
